FAERS Safety Report 12779520 (Version 1)
Quarter: 2016Q3

REPORT INFORMATION
  Report Type: Report from Study
  Country: CO (occurrence: CO)
  Receive Date: 20160926
  Receipt Date: 20160926
  Transmission Date: 20161109
  Serious: Yes (Death, Hospitalization)
  Sender: FDA-Public Use
  Company Number: PHHY2016CO110029

PATIENT
  Age: 61 Year
  Sex: Female

DRUGS (4)
  1. LEPRIT [Concomitant]
     Indication: FLATULENCE
     Dosage: UNK UNK, QD
     Route: 065
  2. AFINITOR [Suspect]
     Active Substance: EVEROLIMUS
     Indication: RENAL CANCER METASTATIC
     Dosage: 10 MG, QD
     Route: 048
     Dates: start: 20160521
  3. AFINITOR [Suspect]
     Active Substance: EVEROLIMUS
     Dosage: 5 MG, QD
     Route: 048
  4. LASIX [Concomitant]
     Active Substance: FUROSEMIDE
     Indication: PRODUCT USED FOR UNKNOWN INDICATION
     Dosage: 400 MG, UNK
     Route: 065

REACTIONS (5)
  - Inflammation [Unknown]
  - Colitis [Unknown]
  - Abdominal distension [Fatal]
  - Peripheral swelling [Fatal]
  - Blood albumin decreased [Unknown]

NARRATIVE: CASE EVENT DATE: 20160622
